FAERS Safety Report 15957149 (Version 2)
Quarter: 2019Q1

REPORT INFORMATION
  Report Type: Spontaneous
  Country: US (occurrence: US)
  Receive Date: 20190213
  Receipt Date: 20190221
  Transmission Date: 20190417
  Serious: No
  Sender: FDA-Public Use
  Company Number: US-PFIZER INC-2019056009

PATIENT
  Age: 54 Year
  Sex: Female
  Weight: 73 kg

DRUGS (2)
  1. LYRICA [Suspect]
     Active Substance: PREGABALIN
     Indication: MIGRAINE
     Dosage: 300 MG, DAILY (1 CAP QAM , 2 CAP QPM)
  2. ALPRAZOLAM. [Concomitant]
     Active Substance: ALPRAZOLAM
     Dosage: UNK UNK, AS NEEDED (0.5 MG TABLET HALF TABLET ORALLY PRN)
     Route: 048
     Dates: start: 20181209

REACTIONS (3)
  - Product use in unapproved indication [Unknown]
  - Drug hypersensitivity [Unknown]
  - Vertigo [Unknown]
